FAERS Safety Report 5894560-1 (Version None)
Quarter: 2008Q3

REPORT INFORMATION
  Report Type: 
  Country: None (occurrence: None)
  Receive Date: 20080924
  Receipt Date: 20080806
  Transmission Date: 20090109
  Serious: No
  Sender: FDA-Public Use
  Company Number: US-BAYER-200828786NA

PATIENT
  Age: 60 Year
  Sex: Female
  Weight: 63 kg

DRUGS (7)
  1. ACARBOSE [Suspect]
     Indication: DIABETES MELLITUS
     Dosage: TOTAL DAILY DOSE: 100 MG  UNIT DOSE: 50 MG
     Route: 048
     Dates: start: 20070628, end: 20070726
  2. GLIMEPIRIDE [Suspect]
     Indication: DIABETES MELLITUS
     Dosage: TOTAL DAILY DOSE: 6 MG
     Route: 048
     Dates: start: 20030101, end: 20070729
  3. AVANDAMET [Suspect]
     Indication: DIABETES MELLITUS
     Route: 048
     Dates: start: 20070726, end: 20070729
  4. BIPRETERAX [Concomitant]
     Route: 048
     Dates: start: 20030101
  5. SIMVASTATIN [Concomitant]
     Route: 048
     Dates: start: 20030101
  6. METFORMIN HCL [Concomitant]
     Route: 048
     Dates: start: 20030101, end: 20070726
  7. METFORMIN HCL [Concomitant]
     Dates: start: 20070701

REACTIONS (1)
  - PANCREATITIS ACUTE [None]
